FAERS Safety Report 17087380 (Version 1)
Quarter: 2019Q4

REPORT INFORMATION
  Report Type: Spontaneous
  Country: US (occurrence: US)
  Receive Date: 20191128
  Receipt Date: 20191128
  Transmission Date: 20200122
  Serious: Yes (Other)
  Sender: FDA-Public Use
  Company Number: US-ROCHE-2476396

PATIENT
  Age: 15 Year
  Sex: Male
  Weight: 72.64 kg

DRUGS (1)
  1. TAMIFLU [Suspect]
     Active Substance: OSELTAMIVIR PHOSPHATE
     Indication: INFLUENZA
     Dosage: FOR 5 DAYS ;ONGOING: YES
     Route: 048
     Dates: start: 20191017

REACTIONS (6)
  - Internal haemorrhage [Unknown]
  - Pain [Unknown]
  - Blood urine present [Recovered/Resolved]
  - Off label use [Unknown]
  - Back pain [Not Recovered/Not Resolved]
  - Intentional product misuse [Unknown]

NARRATIVE: CASE EVENT DATE: 20191024
